FAERS Safety Report 7434395-1 (Version None)
Quarter: 2011Q2

REPORT INFORMATION
  Report Type: 
  Country: None (occurrence: None)
  Receive Date: 20110425
  Receipt Date: 20110411
  Transmission Date: 20111010
  Serious: Yes (Hospitalization, Other)
  Sender: FDA-Public Use
  Company Number: PHHY2011IE16835

PATIENT
  Age: 25 Year
  Sex: Male

DRUGS (8)
  1. CLOZARIL [Suspect]
     Dosage: 200 MG, QD
  2. CLOZARIL [Suspect]
     Indication: SCHIZOAFFECTIVE DISORDER
     Dosage: 175 MG, QOD
  3. RAMIPRIL [Concomitant]
  4. QUETIAPINE [Concomitant]
     Dosage: 300 MG, QOD
  5. OLANZAPINE [Concomitant]
  6. FRUSEMIDE [Concomitant]
  7. CLOZARIL [Suspect]
     Dosage: 175 MG, QD
  8. PROPRANOLOL [Concomitant]

REACTIONS (27)
  - PULMONARY EMBOLISM [None]
  - PULMONARY OEDEMA [None]
  - MYOCARDITIS [None]
  - MENTAL DISORDER [None]
  - HYPERHIDROSIS [None]
  - UPPER RESPIRATORY TRACT INFECTION [None]
  - SYSTOLIC HYPERTENSION [None]
  - ELECTROCARDIOGRAM ST SEGMENT ELEVATION [None]
  - SALIVARY HYPERSECRETION [None]
  - COUGH [None]
  - BLOOD CREATINE PHOSPHOKINASE INCREASED [None]
  - RASH ERYTHEMATOUS [None]
  - SINUS TACHYCARDIA [None]
  - DYSPNOEA [None]
  - HEADACHE [None]
  - CARDIOMEGALY [None]
  - TACHYPNOEA [None]
  - SEPSIS [None]
  - HYPOXIA [None]
  - PYREXIA [None]
  - NAUSEA [None]
  - PERICARDIAL EFFUSION [None]
  - NEUROLEPTIC MALIGNANT SYNDROME [None]
  - TROPONIN INCREASED [None]
  - HYPOCAPNIA [None]
  - PALPITATIONS [None]
  - CHEST PAIN [None]
